FAERS Safety Report 7315292-9 (Version None)
Quarter: 2011Q1

REPORT INFORMATION
  Report Type: 
  Country: None (occurrence: None)
  Receive Date: 20110225
  Receipt Date: 20110215
  Transmission Date: 20110831
  Serious: Yes (Other)
  Sender: FDA-Public Use
  Company Number: PHHY2010JP78618

PATIENT
  Sex: Female
  Weight: 84 kg

DRUGS (4)
  1. NOLVADEX [Concomitant]
     Indication: BREAST CANCER
     Dosage: 20 MG, UNK
     Route: 048
     Dates: start: 20061027
  2. ZOLADEX [Concomitant]
     Indication: BREAST CANCER
     Dosage: 3.6 MG, UNK
     Route: 030
     Dates: start: 20061027
  3. ZOMETA [Suspect]
     Indication: METASTASES TO BONE
     Dosage: 4MG (PER ADMINISTRATION)
     Route: 041
     Dates: start: 20061027
  4. BIOFERMIN [Concomitant]
     Indication: CONSTIPATION
     Dosage: 3 G, UNK
     Route: 048
     Dates: start: 20080123

REACTIONS (7)
  - PAIN [None]
  - ALANINE AMINOTRANSFERASE INCREASED [None]
  - OSTEONECROSIS OF JAW [None]
  - NEOPLASM MALIGNANT [None]
  - OSTEOMYELITIS [None]
  - ASPARTATE AMINOTRANSFERASE INCREASED [None]
  - CONSTIPATION [None]
